FAERS Safety Report 17212887 (Version 1)
Quarter: 2019Q4

REPORT INFORMATION
  Report Type: Spontaneous
  Country: SE (occurrence: SE)
  Receive Date: 20191230
  Receipt Date: 20191230
  Transmission Date: 20200122
  Serious: Yes (Hospitalization)
  Sender: FDA-Public Use
  Company Number: SE-TEVA-2019-SE-1158756

PATIENT
  Age: 18 Year
  Sex: Female

DRUGS (3)
  1. ATARAX [Suspect]
     Active Substance: HYDROXYZINE HYDROCHLORIDE
     Dosage: 1.5 GM
     Dates: start: 20180315, end: 20180315
  2. FLUOXETINE [Suspect]
     Active Substance: FLUOXETINE HYDROCHLORIDE
     Dosage: ^UNCLEAR AMOUNT BUT NOT SO MANY^
     Route: 065
     Dates: start: 20180315, end: 20180315
  3. PROPAVAN [Suspect]
     Active Substance: PROPIOMAZINE
     Dosage: 300 MG
     Route: 048
     Dates: start: 20180315, end: 20180315

REACTIONS (4)
  - Akathisia [Unknown]
  - Intentional overdose [Unknown]
  - Intentional self-injury [Unknown]
  - Tachycardia [Unknown]

NARRATIVE: CASE EVENT DATE: 20180315
